FAERS Safety Report 5106246-1 (Version None)
Quarter: 2006Q3

REPORT INFORMATION
  Report Type: 
  Country: None (occurrence: None)
  Receive Date: 20060918
  Receipt Date: 20060725
  Transmission Date: 20061208
  Serious: Yes (Other)
  Sender: FDA-Public Use
  Company Number: PHMT2006CA01591

PATIENT
  Age: 54 Year
  Sex: Female
  Weight: 48.344 kg

DRUGS (3)
  1. CLOZARIL [Suspect]
     Indication: SCHIZOPHRENIA
     Dosage: 300 MG PER DAY
     Route: 048
     Dates: start: 19990215
  2. CLOZARIL [Suspect]
     Dosage: 50 MG PER DAY
     Route: 048
     Dates: start: 20060701
  3. CLONAZEPAM [Concomitant]
     Dosage: 0.25 MG BID

REACTIONS (6)
  - CARDIAC VALVE DISEASE [None]
  - CONVULSION [None]
  - ECHOCARDIOGRAM ABNORMAL [None]
  - HYPONATRAEMIA [None]
  - LIPIDS INCREASED [None]
  - TROPONIN INCREASED [None]
